FAERS Safety Report 16007819 (Version 2)
Quarter: 2019Q1

REPORT INFORMATION
  Report Type: Report from Study
  Country: MX (occurrence: MX)
  Receive Date: 20190226
  Receipt Date: 20190329
  Transmission Date: 20190418
  Serious: Yes (Disabling)
  Sender: FDA-Public Use
  Company Number: PHHY2019MX043964

PATIENT
  Age: 11 Year
  Sex: Female
  Weight: 28.5 kg

DRUGS (3)
  1. OMNITROPE [Suspect]
     Active Substance: SOMATROPIN
     Indication: BODY HEIGHT BELOW NORMAL
  2. LEVETIRACETAM. [Suspect]
     Active Substance: LEVETIRACETAM
     Indication: EPILEPSY
     Dosage: 750 MG, QD
     Route: 048
     Dates: start: 201702
  3. OMNITROPE [Suspect]
     Active Substance: SOMATROPIN
     Indication: PUBERTY
     Dosage: 1.25 MG, QD
     Route: 058
     Dates: start: 20190210

REACTIONS (7)
  - Haemoptysis [Unknown]
  - Abdominal pain upper [Recovering/Resolving]
  - Somnolence [Recovering/Resolving]
  - Discomfort [Recovering/Resolving]
  - Product use in unapproved indication [Unknown]
  - Epistaxis [Recovering/Resolving]
  - Myalgia [Recovering/Resolving]

NARRATIVE: CASE EVENT DATE: 20190219
